FAERS Safety Report 7372456-6 (Version None)
Quarter: 2011Q1

REPORT INFORMATION
  Report Type: 
  Country: None (occurrence: None)
  Receive Date: 20110315
  Receipt Date: 20110224
  Transmission Date: 20110831
  Serious: Yes (Other)
  Sender: FDA-Public Use
  Company Number: CRC-11-005

PATIENT
  Sex: Female
  Weight: 61.6892 kg

DRUGS (4)
  1. FOSAMAX [Suspect]
     Indication: BONE DENSITOMETRY
  2. METOPROLOL [Concomitant]
  3. ALENDRONATE SODIUM [Suspect]
     Indication: BONE DENSITOMETRY
     Dosage: ONCE WEEKLY BY MOUTH
     Dates: start: 20100501, end: 20101226
  4. HYDROCHLOROTHIAZIDE [Concomitant]

REACTIONS (2)
  - BLOOD BLISTER [None]
  - EYE HAEMORRHAGE [None]
